FAERS Safety Report 7615687-X (Version None)
Quarter: 2011Q3

REPORT INFORMATION
  Report Type: 
  Country: None (occurrence: None)
  Receive Date: 20110715
  Receipt Date: 20110715
  Transmission Date: 20111222
  Serious: Yes (Hospitalization)
  Sender: FDA-Public Use
  Company Number: None

PATIENT
  Age: 63 Year
  Sex: Male
  Weight: 102.9665 kg

DRUGS (6)
  1. TERAZOSIN HCL [Concomitant]
  2. ASPIRIN [Concomitant]
  3. ZOCOR [Concomitant]
  4. FLOMAX [Concomitant]
  5. RAD001 (EVEROLIMUS) 10MG, NOVARTIS [Suspect]
     Indication: RENAL CELL CARCINOMA
     Dosage: 10MG, ONCE DAILY, ORAL
     Route: 048
  6. NAPROSYN [Concomitant]

REACTIONS (3)
  - ATELECTASIS [None]
  - CHEST PAIN [None]
  - LUNG INFILTRATION [None]
